FAERS Safety Report 6838601-3 (Version None)
Quarter: 2010Q3

REPORT INFORMATION
  Report Type: 
  Country: None (occurrence: None)
  Receive Date: 20100713
  Receipt Date: 20070615
  Transmission Date: 20110219
  Serious: No
  Sender: FDA-Public Use
  Company Number: US-PFIZER INC-2007050814

PATIENT
  Sex: Female
  Weight: 72.6 kg

DRUGS (12)
  1. CHANTIX [Suspect]
     Indication: SMOKING CESSATION THERAPY
     Route: 048
     Dates: start: 20070601
  2. CENTRUM SILVER [Concomitant]
     Route: 048
  3. FISH OIL [Concomitant]
     Route: 048
  4. EFFEXOR [Concomitant]
     Route: 048
  5. EVISTA [Concomitant]
     Route: 048
  6. HYDROCHLOROTHIAZIDE [Concomitant]
     Route: 048
  7. ZETIA [Concomitant]
     Route: 048
  8. ECOTIN [Concomitant]
     Route: 048
  9. TRICOR [Concomitant]
     Route: 048
  10. DILTIAZEM HYDROCHLORIDE [Concomitant]
     Route: 048
  11. TOPROL-XL [Concomitant]
     Route: 048
  12. LIPITOR [Concomitant]
     Route: 048

REACTIONS (1)
  - INSOMNIA [None]
